FAERS Safety Report 11169022 (Version 3)
Quarter: 2015Q4

REPORT INFORMATION
  Report Type: Spontaneous
  Country: JP (occurrence: JP)
  Receive Date: 20150605
  Receipt Date: 20151026
  Transmission Date: 20160304
  Serious: Yes (Death, Life-Threatening, Other)
  Sender: FDA-Public Use
  Company Number: JP-ELI_LILLY_AND_COMPANY-JP201506001768

PATIENT
  Age: 63 Year
  Sex: Female
  Weight: 46 kg

DRUGS (17)
  1. PRASUGREL HYDROCHLORIDE [Suspect]
     Active Substance: PRASUGREL HYDROCHLORIDE
     Dosage: 3.75 MG, QD
     Route: 048
     Dates: start: 20150516
  2. BAYASPIRIN [Suspect]
     Active Substance: ASPIRIN
     Indication: PERCUTANEOUS CORONARY INTERVENTION
     Dosage: 200 MG, SINGLE
     Dates: start: 20150515, end: 20150515
  3. SUREPOST [Concomitant]
     Active Substance: REPAGLINIDE
     Dosage: .5 MG, BID
     Route: 048
  4. COAHIBITOR [Concomitant]
     Active Substance: NAFAMOSTAT MESYLATE
     Dosage: UNK UNK, UNKNOWN
     Route: 065
  5. HEPARIN [Concomitant]
     Active Substance: HEPARIN SODIUM
     Dosage: UNK UNK, UNKNOWN
     Route: 065
     Dates: end: 20150519
  6. NORVASC [Concomitant]
     Active Substance: AMLODIPINE BESYLATE
     Dosage: 5 MG, QD
     Route: 048
  7. LIVALO [Concomitant]
     Active Substance: PITAVASTATIN CALCIUM
     Dosage: 2 MG, QD
     Route: 048
     Dates: start: 20150515
  8. PRASUGREL HYDROCHLORIDE [Suspect]
     Active Substance: PRASUGREL HYDROCHLORIDE
     Indication: PERCUTANEOUS CORONARY INTERVENTION
     Dosage: 20 MG, SINGLE
     Dates: start: 20150515, end: 20150515
  9. HALFDIGOXIN [Concomitant]
     Active Substance: DIGOXIN
     Dosage: .625 MG, QD
     Route: 048
  10. TRAZENTA [Concomitant]
     Active Substance: LINAGLIPTIN
     Dosage: 5 MG, QD
     Route: 048
  11. PARIET [Concomitant]
     Active Substance: RABEPRAZOLE SODIUM
     Dosage: 10 MG, QD
     Route: 048
     Dates: start: 20150515
  12. BAYASPIRIN [Suspect]
     Active Substance: ASPIRIN
     Dosage: 100 MG, QD
     Route: 048
     Dates: start: 20150516
  13. CEFTRIAXONE. [Concomitant]
     Active Substance: CEFTRIAXONE
     Dosage: 2 G, QD
     Route: 065
  14. MIDAZOLAM [Concomitant]
     Active Substance: MIDAZOLAM\MIDAZOLAM HYDROCHLORIDE
     Dosage: UNK UNK, UNKNOWN
     Route: 065
     Dates: start: 20150515
  15. DEPAS [Concomitant]
     Active Substance: ETIZOLAM
     Dosage: 1 MG, QD
     Route: 048
  16. SENNA [Concomitant]
     Active Substance: SENNA LEAF\SENNOSIDES\SENNOSIDES A AND B
     Dosage: 12 MG, QD
     Route: 065
  17. SIGMART [Concomitant]
     Active Substance: NICORANDIL
     Dosage: UNK UNK, UNKNOWN
     Route: 065
     Dates: start: 20150515

REACTIONS (8)
  - Shock haemorrhagic [Unknown]
  - Cardiac arrest [Recovered/Resolved]
  - Sepsis [Fatal]
  - Loss of consciousness [Unknown]
  - Atrioventricular block [Unknown]
  - Shunt occlusion [Unknown]
  - Haemorrhage [Recovered/Resolved with Sequelae]
  - Postresuscitation encephalopathy [Unknown]

NARRATIVE: CASE EVENT DATE: 20150519
